FAERS Safety Report 5692783-8 (Version None)
Quarter: 2008Q2

REPORT INFORMATION
  Report Type: 
  Country: None (occurrence: None)
  Receive Date: 20080401
  Receipt Date: 20080317
  Transmission Date: 20081010
  Serious: Yes (Hospitalization, Other)
  Sender: FDA-Public Use
  Company Number: 2008S1000064

PATIENT
  Age: 38 Year
  Sex: Female

DRUGS (1)
  1. FLUOXETINE [Suspect]
     Indication: STRESS
     Dosage: 40 MG;DAILY;ORAL
     Route: 048

REACTIONS (5)
  - HYPERTENSION [None]
  - MACULAR OEDEMA [None]
  - RETINAL VASCULAR OCCLUSION [None]
  - VISION BLURRED [None]
  - VISUAL ACUITY REDUCED [None]
